FAERS Safety Report 21823522 (Version 1)
Quarter: 2023Q1

REPORT INFORMATION
  Report Type: Spontaneous
  Country: SE (occurrence: SE)
  Receive Date: 20230105
  Receipt Date: 20230105
  Transmission Date: 20230418
  Serious: Yes (Other)
  Sender: FDA-Public Use
  Company Number: None

PATIENT
  Age: 26 Year
  Sex: Female
  Weight: 78 kg

DRUGS (1)
  1. METOPROLOL SUCCINATE [Suspect]
     Active Substance: METOPROLOL SUCCINATE
     Indication: Sinus node dysfunction
     Dosage: 50 MILLIGRAM, QD (1 TABLET, ONCE A DAY, ANOTHER TABLET WHEN NEEDED)
     Route: 048
     Dates: start: 20191101

REACTIONS (2)
  - Hypnopompic hallucination [Not Recovered/Not Resolved]
  - Hypnagogic hallucination [Not Recovered/Not Resolved]

NARRATIVE: CASE EVENT DATE: 20210101
